FAERS Safety Report 11671781 (Version 2)
Quarter: 2018Q1

REPORT INFORMATION
  Report Type: Report from Study
  Country: US (occurrence: US)
  Receive Date: 20151028
  Receipt Date: 20180116
  Transmission Date: 20180508
  Serious: No
  Sender: FDA-Public Use
  Company Number: PHEH2014US019136

PATIENT
  Sex: Female

DRUGS (6)
  1. HECORIA [Suspect]
     Active Substance: TACROLIMUS
     Dosage: 0.5 MG, 1 CAPSULE IN THE MORNING (AM) AND 1 IN THE EVENING (PM)
     Route: 048
  2. HECORIA [Suspect]
     Active Substance: TACROLIMUS
     Indication: PRODUCT USED FOR UNKNOWN INDICATION
     Dosage: 1 MG, 2 CAPSULES EVERY AM AND PM
     Route: 048
  3. HECORIA [Suspect]
     Active Substance: TACROLIMUS
     Dosage: 1 MG, 4 CAPSULES BY MOUTH EVERY MORNING AND EVENING
     Route: 048
  4. HECORIA [Suspect]
     Active Substance: TACROLIMUS
     Dosage: 4 MG, BID, TWICE A DAY
     Route: 048
  5. HECORIA [Suspect]
     Active Substance: TACROLIMUS
     Dosage: 1 MG, 4 CAPSULES BY MOUTH EVERY MORNING AND EVENING
     Route: 048
  6. MYFORTIC [Suspect]
     Active Substance: MYCOPHENOLATE SODIUM
     Indication: PRODUCT USED FOR UNKNOWN INDICATION
     Dosage: 360 MG, BID, 2 TABLETS TWICE DAILY
     Route: 048

REACTIONS (1)
  - Drug level below therapeutic [Unknown]
